FAERS Safety Report 6097195-3 (Version None)
Quarter: 2009Q1

REPORT INFORMATION
  Report Type: 
  Country: None (occurrence: None)
  Receive Date: 20090227
  Receipt Date: 20090226
  Transmission Date: 20090719
  Serious: Yes (Death)
  Sender: FDA-Public Use
  Company Number: B0526541B

PATIENT
  Sex: Female

DRUGS (1)
  1. DILATREND [Suspect]
     Indication: CARDIOMYOPATHY
     Dosage: 12.5MG PER DAY
     Dates: start: 20080401, end: 20080415

REACTIONS (3)
  - DEATH [None]
  - DRUG EXPOSURE DURING PREGNANCY [None]
  - PREMATURE BABY [None]
